FAERS Safety Report 14346719 (Version 2)
Quarter: 2018Q1

REPORT INFORMATION
  Report Type: Spontaneous
  Country: US (occurrence: US)
  Receive Date: 20180103
  Receipt Date: 20180111
  Transmission Date: 20180509
  Serious: No
  Sender: FDA-Public Use
  Company Number: US-TEVA-2017-US-839823

PATIENT
  Sex: Female

DRUGS (1)
  1. NUVIGIL [Suspect]
     Active Substance: ARMODAFINIL
     Indication: SLEEP APNOEA SYNDROME
     Dosage: 150 MILLIGRAM DAILY; 150MG ONCE DAILY IN THE MORNING, TAKEN APPROXIMATELY ONE HOUR PRIOR TO START OF
     Route: 065
     Dates: start: 20171117

REACTIONS (1)
  - Drug ineffective [Unknown]
